FAERS Safety Report 4309387-1 (Version None)
Quarter: 2004Q1

REPORT INFORMATION
  Report Type: 
  Country: None (occurrence: None)
  Receive Date: 20040302
  Receipt Date: 20040227
  Transmission Date: 20041129
  Serious: Yes (Hospitalization)
  Sender: FDA-Public Use
  Company Number: DE-ROCHE-360078

PATIENT
  Age: 63 Year
  Sex: Female

DRUGS (26)
  1. DACLIZUMAB [Suspect]
     Route: 042
     Dates: start: 20031117
  2. DACLIZUMAB [Suspect]
     Route: 042
     Dates: start: 20031201, end: 20040113
  3. MYCOPHENOLATE MOFETIL [Suspect]
     Route: 048
     Dates: start: 20031118
  4. MYCOPHENOLATE MOFETIL [Suspect]
     Route: 048
     Dates: start: 20031120, end: 20040216
  5. CYCLOSPORINE [Suspect]
     Route: 048
     Dates: start: 20040113
  6. CYCLOSPORINE [Suspect]
     Route: 048
     Dates: start: 20031118, end: 20031118
  7. CYCLOSPORINE [Suspect]
     Route: 048
     Dates: start: 20031119, end: 20031119
  8. CYCLOSPORINE [Suspect]
     Route: 048
     Dates: start: 20031120, end: 20031120
  9. CYCLOSPORINE [Suspect]
     Route: 048
     Dates: start: 20031121
  10. CYCLOSPORINE [Suspect]
     Route: 048
     Dates: start: 20031124, end: 20031124
  11. CYCLOSPORINE [Suspect]
     Route: 048
     Dates: start: 20031125
  12. CYCLOSPORINE [Suspect]
     Route: 048
     Dates: start: 20031128, end: 20031128
  13. CYCLOSPORINE [Suspect]
     Route: 048
     Dates: start: 20031129
  14. CYCLOSPORINE [Suspect]
     Route: 048
     Dates: start: 20031202
  15. CYCLOSPORINE [Suspect]
     Route: 048
     Dates: start: 20031230
  16. URBASON [Suspect]
     Route: 042
     Dates: start: 20040113
  17. URBASON [Suspect]
     Route: 042
     Dates: start: 20031117, end: 20031117
  18. URBASON [Suspect]
     Route: 042
     Dates: start: 20031118, end: 20031118
  19. URBASON [Suspect]
     Route: 042
     Dates: start: 20031119, end: 20031119
  20. URBASON [Suspect]
     Route: 042
     Dates: start: 20031120, end: 20031120
  21. URBASON [Suspect]
     Route: 042
     Dates: start: 20031121
  22. URBASON [Suspect]
     Route: 042
     Dates: start: 20031127
  23. URBASON [Suspect]
     Route: 042
     Dates: start: 20031204
  24. URBASON [Suspect]
     Route: 042
     Dates: start: 20031230
  25. PRAVASIN [Concomitant]
     Dosage: DRUG NAME PROVIDED AS PRAVASIN 20. DOSE PROVIDED AS 00-0-1. UNITS NOT PROVIDED.
  26. VESDIL [Concomitant]
     Dosage: DRUG NAME PROVIDED AS VESDIL 2.5. DOSE PROVIDED AS 1-0-0. UNITS NOT PROVIDED.

REACTIONS (2)
  - DISEASE PROGRESSION [None]
  - LEUKOPENIA [None]
